FAERS Safety Report 4374983-2 (Version None)
Quarter: 2004Q2

REPORT INFORMATION
  Report Type: 
  Country: None (occurrence: None)
  Receive Date: 20040608
  Receipt Date: 20040107
  Transmission Date: 20050107
  Serious: Yes (Disabling)
  Sender: FDA-Public Use
  Company Number: WAES 0401USA02012

PATIENT
  Age: 80 Year
  Sex: Female
  Weight: 63.5036 kg

DRUGS (5)
  1. COSOPT [Suspect]
     Indication: GLAUCOMA
     Dosage: 2 DROPS/BID/OPHT
     Route: 047
  2. LANOXIN [Concomitant]
  3. LIPITOR [Concomitant]
  4. TOPROL-XL [Concomitant]
  5. XALATAN [Concomitant]

REACTIONS (5)
  - ABNORMAL SENSATION IN EYE [None]
  - EYE DISCHARGE [None]
  - EYE IRRITATION [None]
  - EYE REDNESS [None]
  - OCULAR ICTERUS [None]
